FAERS Safety Report 14380283 (Version 1)
Quarter: 2018Q1

REPORT INFORMATION
  Report Type: Other
  Country: US (occurrence: US)
  Receive Date: 20180112
  Receipt Date: 20180112
  Transmission Date: 20180509
  Serious: Yes (Death)
  Sender: FDA-Public Use
  Company Number: US-PHARMA_RESEARCH_SOFTWARE_SOLUTION-USA-POI0580201800079

PATIENT
  Age: 60 Year
  Sex: Female

DRUGS (3)
  1. FUROSEMIDE. [Suspect]
     Active Substance: FUROSEMIDE
     Dates: end: 2016
  2. POTASSIUM CHLORIDE FOR ORAL SOLUTION [Suspect]
     Active Substance: POTASSIUM CHLORIDE
     Dates: end: 2016
  3. AMLODIPINE [Suspect]
     Active Substance: AMLODIPINE BESYLATE
     Dates: end: 2016

REACTIONS (1)
  - Completed suicide [Fatal]

NARRATIVE: CASE EVENT DATE: 2016
